FAERS Safety Report 21357987 (Version 1)
Quarter: 2022Q3

REPORT INFORMATION
  Report Type: Spontaneous
  Country: US (occurrence: US)
  Receive Date: 20220921
  Receipt Date: 20220921
  Transmission Date: 20221027
  Serious: No
  Sender: FDA-Public Use
  Company Number: Athemc-687

PATIENT
  Age: 66 Year
  Sex: Female

DRUGS (1)
  1. PACLITAXEL [Suspect]
     Active Substance: PACLITAXEL
     Indication: Endometrial cancer
     Dosage: 357 MG, FIRST CYCLE
     Route: 042
     Dates: start: 20220329

REACTIONS (3)
  - Back pain [Recovered/Resolved]
  - Throat irritation [Recovered/Resolved]
  - Dyspnoea [Recovered/Resolved]
